FAERS Safety Report 6741049-3 (Version None)
Quarter: 2010Q2

REPORT INFORMATION
  Report Type: 
  Country: None (occurrence: None)
  Receive Date: 20100526
  Receipt Date: 20100513
  Transmission Date: 20101027
  Serious: Yes (Hospitalization)
  Sender: FDA-Public Use
  Company Number: US-JNJFOC-20100506353

PATIENT
  Age: 50 Year
  Sex: Male

DRUGS (5)
  1. INTELENCE [Suspect]
     Indication: HIV INFECTION
     Route: 048
  2. INTELENCE [Suspect]
     Route: 048
  3. LAMIVUDINE [Concomitant]
     Indication: HIV INFECTION
  4. ISENTRESS [Concomitant]
     Indication: HIV INFECTION
  5. TENOFOVIR [Concomitant]
     Indication: HIV INFECTION

REACTIONS (5)
  - ASPARTATE AMINOTRANSFERASE INCREASED [None]
  - BILIRUBIN CONJUGATED INCREASED [None]
  - BLOOD ALKALINE PHOSPHATASE INCREASED [None]
  - CELLULITIS [None]
  - CONFUSIONAL STATE [None]
